FAERS Safety Report 7187131-0 (Version None)
Quarter: 2010Q4

REPORT INFORMATION
  Report Type: 
  Country: None (occurrence: None)
  Receive Date: 20101222
  Receipt Date: 20100730
  Transmission Date: 20110411
  Serious: Yes (Life-Threatening, Hospitalization, Other)
  Sender: FDA-Public Use
  Company Number: AU-AMGEN-STX355851

PATIENT

DRUGS (8)
  1. VECTIBIX [Suspect]
     Indication: COLORECTAL CANCER
     Dosage: 6 MG/KG, UNK
     Route: 042
     Dates: start: 20090114
  2. VECTIBIX [Suspect]
     Dosage: 6 MG/KG, UNK
     Route: 042
     Dates: start: 20090114
  3. IRINOTECAN HCL [Concomitant]
     Dosage: UNK UNK, UNK
     Dates: start: 20080101
  4. FLUOROURACIL [Concomitant]
     Dosage: UNK UNK, UNK
     Dates: start: 20080101
  5. FOLINIC ACID [Concomitant]
     Dosage: UNK UNK, UNK
     Dates: start: 20080101
  6. ONDANSETRON [Concomitant]
     Dosage: UNK UNK, UNK
     Dates: start: 20080101
  7. DEXAMETHASONE [Concomitant]
     Dosage: UNK UNK, UNK
     Dates: start: 20080101
  8. FLUOXETINE [Concomitant]
     Dosage: UNK UNK, UNK
     Dates: start: 20090501

REACTIONS (8)
  - FALL [None]
  - HYPOCALCAEMIA [None]
  - HYPOKALAEMIA [None]
  - HYPOMAGNESAEMIA [None]
  - HYPOPHOSPHATAEMIA [None]
  - JOINT DISLOCATION [None]
  - RASH [None]
  - WRIST FRACTURE [None]
